FAERS Safety Report 8416124-8 (Version None)
Quarter: 2012Q2

REPORT INFORMATION
  Report Type: 
  Country: None (occurrence: None)
  Receive Date: 20120606
  Receipt Date: 20120321
  Transmission Date: 20120825
  Serious: Yes (Other)
  Sender: FDA-Public Use
  Company Number: US-ROCHE-1074875

PATIENT
  Age: 46 Year
  Sex: Female

DRUGS (2)
  1. HERCEPTIN [Suspect]
     Indication: BREAST CANCER METASTATIC
     Route: 042
  2. FASLODEX [Concomitant]
     Indication: BREAST CANCER METASTATIC
     Route: 030

REACTIONS (3)
  - NEOPLASM MALIGNANT [None]
  - HAIR TEXTURE ABNORMAL [None]
  - HAIR GROWTH ABNORMAL [None]
